FAERS Safety Report 8102174 (Version 2)
Quarter: 2014Q4

REPORT INFORMATION
  Report Type: Spontaneous
  Country: JP (occurrence: None)
  Receive Date: 20110805
  Receipt Date: 20141204
  Transmission Date: 20150529
  Serious: Yes (Other)
  Sender: FDA-Public Use
  Company Number: 2008JP005121

PATIENT
  Age: 34 Year
  Sex: Male
  Weight: 69 kg

DRUGS (21)
  1. SHOUSEIRYUUTOU (HERBAL EXTRACT NOS) [Concomitant]
  2. PL GRAN. (CAFFEINE, PARACETAMOL, PROMETHAZINE METHYLENE DISALICYLATE, SALICYLAMIDE) [Concomitant]
  3. TAKEPRON (LANSOPRAZOLE) [Concomitant]
     Active Substance: LANSOPRAZOLE
  4. FLUVASTATIN [Concomitant]
     Active Substance: FLUVASTATIN SODIUM
  5. HOCHUUEKKITOU (HERBAL EXTRACT NOS) [Concomitant]
  6. BAYASPIRIN (ACETYLSALICYLIC ACID) (ACETYLSALICYLIC ACID) [Concomitant]
     Active Substance: ASPIRIN
  7. COTRIM [Concomitant]
     Active Substance: SULFAMETHOXAZOLE\TRIMETHOPRIM
  8. BONALON (ALENDRONATE SODIUM) [Concomitant]
  9. ALLELOCK (OLOPATADINE HYDROCHLORIDE) [Concomitant]
  10. TACROLIMUS. [Suspect]
     Active Substance: TACROLIMUS
     Indication: LUPUS NEPHRITIS
     Dosage: 3 MG, ONCE DAILY, ORAL
     Route: 048
     Dates: start: 20070423, end: 20080312
  11. PREDNISOLONE. [Suspect]
     Active Substance: PREDNISOLONE
     Indication: LUPUS NEPHRITIS
     Dosage: 30 MG, ONCE DAILY, ORAL
     Route: 048
     Dates: end: 20070528
  12. MICARDIS [Concomitant]
     Active Substance: TELMISARTAN
  13. WARFARIN /00014803/ (WARFARIN) [Concomitant]
  14. TACHIONIN (TRICHLORMETHIAZIDE) EYE DROPS [Concomitant]
  15. MUCOSOLVAN (AMBROXOL HYDROCHLORIDE) [Concomitant]
  16. BENET (RISEDRONATE SODIUM) [Concomitant]
  17. KEISHIBUKURYOUGAN (GERBAL EXTRACT NOS) [Concomitant]
  18. MEDICON (DEXTROMETHORPHAN  HYDROBROMIDE) [Concomitant]
     Active Substance: DEXTROMETHORPHAN HYDROBROMIDE
  19. MUCOSTA (REBAMIPIDE) [Concomitant]
  20. SAIREI-TO (HERBAL EXTRACT NOS) [Concomitant]
  21. ASTOMIN (DIMEMORFAN) [Concomitant]

REACTIONS (10)
  - Upper respiratory tract inflammation [None]
  - Tremor [None]
  - Pharyngitis [None]
  - Nervousness [None]
  - Urticaria [None]
  - Dermal cyst [None]
  - Headache [None]
  - Cataract [None]
  - Rhinitis allergic [None]
  - Nasopharyngitis [None]

NARRATIVE: CASE EVENT DATE: 200802
